FAERS Safety Report 21066659 (Version 1)
Quarter: 2022Q3

REPORT INFORMATION
  Report Type: Spontaneous
  Country: CA (occurrence: None)
  Receive Date: 20220711
  Receipt Date: 20220711
  Transmission Date: 20221026
  Serious: Yes (Hospitalization)
  Sender: FDA-Public Use
  Company Number: CA-PFIZER INC-202200934133

PATIENT
  Age: 62 Year
  Sex: Female
  Weight: 57.6 kg

DRUGS (4)
  1. METHOTREXATE [Suspect]
     Active Substance: METHOTREXATE
     Indication: Rheumatoid arthritis
     Route: 065
  2. PREDNISONE [Concomitant]
     Active Substance: PREDNISONE
     Route: 065
     Dates: start: 201606
  3. PREGABALIN [Concomitant]
     Active Substance: PREGABALIN
     Route: 065
  4. LEFLUNOMIDE [Concomitant]
     Active Substance: LEFLUNOMIDE
     Route: 065
     Dates: start: 2020

REACTIONS (3)
  - Respiratory tract infection [Unknown]
  - Rash [Unknown]
  - Dyspnoea [Unknown]
